FAERS Safety Report 10159794 (Version 1)
Quarter: 2014Q2

REPORT INFORMATION
  Report Type: Spontaneous
  Country: US (occurrence: US)
  Receive Date: 20140508
  Receipt Date: 20140508
  Transmission Date: 20141212
  Serious: No
  Sender: FDA-Public Use
  Company Number: US-GLAXOSMITHKLINE-A1028915A

PATIENT
  Age: 56 Year
  Sex: Female

DRUGS (4)
  1. TYKERB [Suspect]
     Indication: BREAST CANCER METASTATIC
     Dosage: 4TAB PER DAY
     Route: 048
     Dates: start: 201208, end: 201304
  2. HERCEPTIN [Concomitant]
  3. EXEMESTANE [Concomitant]
  4. DIOVAN HCT [Concomitant]

REACTIONS (10)
  - Diarrhoea [Recovered/Resolved]
  - Headache [Recovered/Resolved]
  - Dry skin [Recovering/Resolving]
  - Skin exfoliation [Recovering/Resolving]
  - Dandruff [Recovering/Resolving]
  - Rash generalised [Recovering/Resolving]
  - Mouth ulceration [Recovered/Resolved]
  - Epistaxis [Recovered/Resolved]
  - Gingival bleeding [Recovering/Resolving]
  - Skin haemorrhage [Recovering/Resolving]
